FAERS Safety Report 9964074 (Version 2)
Quarter: 2014Q2

REPORT INFORMATION
  Report Type: Spontaneous
  Country: JP (occurrence: JP)
  Receive Date: 20140305
  Receipt Date: 20140630
  Transmission Date: 20141212
  Serious: Yes (Hospitalization)
  Sender: FDA-Public Use
  Company Number: JP-GLAXOSMITHKLINE-B0973853A

PATIENT
  Age: 90 Year
  Sex: Male

DRUGS (3)
  1. SERETIDE (50MCG/250MCG) [Suspect]
     Indication: ASTHMA
     Dosage: 250MCG TWICE PER DAY
     Route: 055
  2. MEPTIN [Concomitant]
     Indication: ASTHMA
     Route: 055
  3. MUCOSOLVAN [Concomitant]
     Indication: ASTHMA
     Route: 048

REACTIONS (2)
  - Peptic ulcer [Recovered/Resolved]
  - Haematemesis [Recovered/Resolved]
